FAERS Safety Report 4515140-6 (Version None)
Quarter: 2004Q4

REPORT INFORMATION
  Report Type: 
  Country: None (occurrence: None)
  Receive Date: 20041129
  Receipt Date: 20041129
  Transmission Date: 20050328
  Serious: Yes (Hospitalization)
  Sender: FDA-Public Use
  Company Number: None

PATIENT
  Sex: Male
  Weight: 93.3 kg

DRUGS (8)
  1. STEM CELLS [Suspect]
  2. ACYCLOVIR [Concomitant]
  3. FLUCONAZOLE [Concomitant]
  4. MULTI-VITAMIN [Concomitant]
  5. BACTRIM [Concomitant]
  6. OLANZEPINE [Concomitant]
  7. MOXIFLOXACIN HCL [Concomitant]
  8. LORAZEPAM [Concomitant]

REACTIONS (5)
  - BIPOLAR DISORDER [None]
  - DELUSION [None]
  - MALAISE [None]
  - NAUSEA [None]
  - PYREXIA [None]
